FAERS Safety Report 14536172 (Version 1)
Quarter: 2018Q1

REPORT INFORMATION
  Report Type: Spontaneous
  Country: US (occurrence: US)
  Receive Date: 20180215
  Receipt Date: 20180215
  Transmission Date: 20180509
  Serious: No
  Sender: FDA-Public Use
  Company Number: US-BAYER-2018-018593

PATIENT
  Age: 69 Year
  Sex: Female
  Weight: 41 kg

DRUGS (7)
  1. BAYER ASPIRIN [Suspect]
     Active Substance: ASPIRIN
     Indication: HEADACHE
  2. ALEVE [Suspect]
     Active Substance: NAPROXEN SODIUM
     Indication: PAIN
     Dosage: 2 IN THE MORNING 1 AT NIGHT
     Route: 048
     Dates: start: 20180129, end: 2018
  3. BAYER ASPIRIN [Suspect]
     Active Substance: ASPIRIN
     Indication: MUSCULOSKELETAL CHEST PAIN
  4. BAYER ASPIRIN [Suspect]
     Active Substance: ASPIRIN
     Indication: PAIN
     Dosage: 1 DF, UNK
     Route: 048
  5. BAYER ASPIRIN [Suspect]
     Active Substance: ASPIRIN
     Indication: BACK PAIN
  6. CALCIUM +VIT D [Concomitant]
     Active Substance: CALCIUM\VITAMIN D
  7. ALEVE [Suspect]
     Active Substance: NAPROXEN SODIUM
     Indication: MUSCULOSKELETAL CHEST PAIN

REACTIONS (3)
  - Musculoskeletal chest pain [Unknown]
  - Drug effect incomplete [Unknown]
  - Drug ineffective [Unknown]

NARRATIVE: CASE EVENT DATE: 20180129
